FAERS Safety Report 6581023-3 (Version None)
Quarter: 2010Q1

REPORT INFORMATION
  Report Type: 
  Country: None (occurrence: None)
  Receive Date: 20100215
  Receipt Date: 20100202
  Transmission Date: 20100710
  Serious: Yes (Hospitalization, Disabling, Other)
  Sender: FDA-Public Use
  Company Number: US-ELI_LILLY_AND_COMPANY-US201002002216

PATIENT
  Sex: Male

DRUGS (13)
  1. FORTEO [Suspect]
     Indication: OSTEOPOROSIS
     Dosage: 20 UG, DAILY (1/D)
     Route: 065
     Dates: start: 20080801
  2. VESICARE [Concomitant]
     Dosage: 10 MG, DAILY (1/D)
     Route: 065
  3. LEFLUNOMIDE [Concomitant]
     Dosage: 20 MG, DAILY (1/D)
     Route: 065
  4. BETASERON [Concomitant]
     Indication: MULTIPLE SCLEROSIS
     Dosage: UNK, OTHER
     Route: 065
  5. LORTAB [Concomitant]
     Dosage: 10 MG, OTHER
     Route: 065
  6. OXYCONTIN [Concomitant]
     Dosage: 20 MG, 4/D
     Route: 065
  7. TRILEPTAL [Concomitant]
     Dosage: 300 MG, 2/D
     Route: 065
  8. LYRICA [Concomitant]
     Dosage: 100 MG, 3/D
     Route: 065
  9. BACLOFEN [Concomitant]
     Dosage: 20 MG, AS NEEDED
     Route: 065
  10. BACLOFEN [Concomitant]
     Dosage: 96 UG, DAILY (1/D)
     Route: 065
  11. ALEVE (CAPLET) [Concomitant]
     Dosage: UNK, OTHER
     Route: 065
  12. CENTRUM [Concomitant]
     Dosage: UNK, DAILY (1/D)
     Route: 065
  13. VALIUM [Concomitant]
     Dosage: 10 MG, AS NEEDED
     Route: 065

REACTIONS (7)
  - ASTHENIA [None]
  - DEVICE OCCLUSION [None]
  - MOBILITY DECREASED [None]
  - MUSCLE SPASMS [None]
  - POST PROCEDURAL COMPLICATION [None]
  - PROGRESSIVE MULTIPLE SCLEROSIS [None]
  - SCAR [None]
